FAERS Safety Report 22533622 (Version 1)
Quarter: 2023Q2

REPORT INFORMATION
  Report Type: Spontaneous
  Country: US (occurrence: US)
  Receive Date: 20230608
  Receipt Date: 20230608
  Transmission Date: 20230722
  Serious: No
  Sender: FDA-Public Use
  Company Number: US-DENDREON PHARMACEUTICAL LLC-2022DEN000354

PATIENT

DRUGS (2)
  1. PROVENGE [Suspect]
     Active Substance: SIPULEUCEL-T
     Indication: Prostate cancer metastatic
     Dosage: DOSE 2
     Route: 042
     Dates: start: 20221104, end: 20221104
  2. PROVENGE [Suspect]
     Active Substance: SIPULEUCEL-T
     Dosage: DOSE 1
     Route: 042
     Dates: start: 20221021, end: 20221021

REACTIONS (1)
  - Vascular device occlusion [Not Recovered/Not Resolved]

NARRATIVE: CASE EVENT DATE: 20221115
